FAERS Safety Report 8740600 (Version 3)
Quarter: 2012Q4

REPORT INFORMATION
  Report Type: 
  Country: US (occurrence: US)
  Receive Date: 20120823
  Receipt Date: 20121123
  Transmission Date: 20130627
  Serious: Yes (Other)
  Sender: FDA-Public Use
  Company Number: US-PFIZER INC-2012203531

PATIENT
  Age: 60 Year
  Sex: Female
  Weight: 58.96 kg

DRUGS (8)
  1. LYRICA [Suspect]
     Indication: NEUROPATHY PERIPHERAL
     Dosage: UNK
  2. LYRICA [Suspect]
     Dosage: 50 mg, 3x/day
     Route: 048
  3. LYRICA [Suspect]
     Dosage: 100 mg, 3x/day
     Route: 048
  4. TAMSULOSIN [Concomitant]
     Dosage: 0.4 mg, 2x/day
  5. COMBIVENT [Concomitant]
     Dosage: UNK, 2x/day
  6. PREMARIN VAGINAL CREAM [Concomitant]
     Dosage: UNK
     Route: 067
  7. ZOLPIDEM [Concomitant]
     Dosage: UNK
  8. HYDROCODONE W/ACETAMINOPHEN [Concomitant]
     Dosage: UNK

REACTIONS (2)
  - Pulmonary mass [Not Recovered/Not Resolved]
  - Drug ineffective [Unknown]
